FAERS Safety Report 10372524 (Version 2)
Quarter: 2014Q3

REPORT INFORMATION
  Report Type: Spontaneous
  Country: US (occurrence: US)
  Receive Date: 20140808
  Receipt Date: 20140808
  Transmission Date: 20150326
  Serious: No
  Sender: FDA-Public Use
  Company Number: US-BRISTOL-MYERS SQUIBB COMPANY-19156231

PATIENT
  Age: 54 Year
  Sex: Male

DRUGS (1)
  1. SPRYCEL [Suspect]
     Active Substance: DASATINIB
     Indication: CHRONIC MYELOID LEUKAEMIA
     Dosage: TABS.?100MG DAILY:17JUL13 TO JUL2013
     Route: 048
     Dates: start: 201302, end: 201307

REACTIONS (5)
  - Wheezing [Unknown]
  - Oedema peripheral [Unknown]
  - Skin disorder [Unknown]
  - Rash [Unknown]
  - Dyspnoea [Unknown]
